FAERS Safety Report 19709012 (Version 1)
Quarter: 2021Q3

REPORT INFORMATION
  Report Type: Spontaneous
  Country: US (occurrence: US)
  Receive Date: 20210817
  Receipt Date: 20210817
  Transmission Date: 20211014
  Serious: No
  Sender: FDA-Public Use
  Company Number: US-SPECGX-T202100242

PATIENT
  Sex: Male
  Weight: 66 kg

DRUGS (4)
  1. OXYCODONE [Suspect]
     Active Substance: OXYCODONE
     Indication: PAIN
     Dosage: 15 MILLIGRAM (3?4 TIMES A DAY)
     Route: 065
  2. BOTOX [Concomitant]
     Active Substance: ONABOTULINUMTOXINA
     Indication: HEADACHE
     Dosage: UNK
     Route: 065
  3. OXYCODONE [Suspect]
     Active Substance: OXYCODONE
     Dosage: 15 MILLIGRAM
     Route: 065
  4. OXYCODONE [Suspect]
     Active Substance: OXYCODONE
     Dosage: 15 MILLIGRAM
     Route: 065

REACTIONS (6)
  - Product physical issue [Unknown]
  - Wrong technique in product usage process [Unknown]
  - Chest pain [Unknown]
  - Treatment noncompliance [Unknown]
  - Alopecia [Unknown]
  - Product taste abnormal [Unknown]
